FAERS Safety Report 16468604 (Version 1)
Quarter: 2019Q2

REPORT INFORMATION
  Report Type: Spontaneous
  Country: MY (occurrence: MY)
  Receive Date: 20190624
  Receipt Date: 20190624
  Transmission Date: 20190711
  Serious: Yes (Hospitalization)
  Sender: FDA-Public Use
  Company Number: MY-PFIZER INC-2019264185

PATIENT
  Age: 43 Year
  Sex: Female

DRUGS (1)
  1. DILANTIN [Suspect]
     Active Substance: PHENYTOIN
     Indication: SEIZURE PROPHYLAXIS
     Dosage: 300 MG, DAILY
     Route: 048

REACTIONS (4)
  - Pruritus [Recovering/Resolving]
  - Bone marrow failure [Recovering/Resolving]
  - Transaminases increased [Recovering/Resolving]
  - Rash erythematous [Recovering/Resolving]
